FAERS Safety Report 7490204-6 (Version None)
Quarter: 2011Q2

REPORT INFORMATION
  Report Type: 
  Country: None (occurrence: None)
  Receive Date: 20110519
  Receipt Date: 20110519
  Transmission Date: 20111010
  Serious: Yes (Other)
  Sender: FDA-Public Use
  Company Number: CA-ROXANE LABORATORIES, INC.-2011-DE-02583GD

PATIENT
  Age: 10 Year
  Sex: Male
  Weight: 48.4 kg

DRUGS (1)
  1. PREDNISONE [Suspect]
     Indication: NEPHROTIC SYNDROME
     Dosage: INTERMITTENT COURSES RESULTING IN A CUMULATIVE DOSE OF 10146 MG/ME2
     Route: 048

REACTIONS (3)
  - OSTEOPOROSIS [None]
  - SPINAL COMPRESSION FRACTURE [None]
  - BACK PAIN [None]
